FAERS Safety Report 4842171-9 (Version None)
Quarter: 2005Q4

REPORT INFORMATION
  Report Type: 
  Country: None (occurrence: None)
  Receive Date: 20051130
  Receipt Date: 20051123
  Transmission Date: 20060501
  Serious: Yes (Hospitalization)
  Sender: FDA-Public Use
  Company Number: US-MERCK-0511USA04192

PATIENT
  Age: 78 Year
  Sex: Male
  Weight: 86 kg

DRUGS (6)
  1. VIOXX [Suspect]
     Indication: ARTHRITIS
     Route: 048
     Dates: start: 20020701, end: 20040901
  2. VERAPAMIL [Concomitant]
     Route: 065
  3. LISINOPRIL [Concomitant]
     Route: 065
  4. ACTOS [Concomitant]
     Route: 065
  5. GLUCOPHAGE [Concomitant]
     Route: 065
  6. GLUCOTROL [Concomitant]
     Route: 065

REACTIONS (2)
  - BACK DISORDER [None]
  - CEREBROVASCULAR ACCIDENT [None]
